FAERS Safety Report 9202418 (Version 2)
Quarter: 2013Q2

REPORT INFORMATION
  Report Type: Spontaneous
  Country: CH (occurrence: CH)
  Receive Date: 20130401
  Receipt Date: 20130503
  Transmission Date: 20140414
  Serious: Yes (Hospitalization, Other)
  Sender: FDA-Public Use
  Company Number: CH-AMGEN-CHESP2013021617

PATIENT
  Age: 85 Year
  Sex: Female
  Weight: 67.4 kg

DRUGS (17)
  1. PROLIA [Suspect]
     Indication: OSTEOPOROSIS
     Dosage: 60 MG, Q6MO
     Route: 058
     Dates: start: 201205
  2. AMLODIPIN                          /00972401/ [Concomitant]
     Dosage: 5 MG, ONE TIME DOSE
  3. ASPIRIN CARDIO [Concomitant]
     Dosage: 100 MG, ONE TIME DOSE
  4. CALCIMAGON D3 [Concomitant]
     Dosage: UNK UNK, BID
  5. DAFALGAN [Concomitant]
     Dosage: 1 G, TID
  6. DULCOLAX                           /00064401/ [Concomitant]
     Dosage: 5 MG, UNK
  7. FENTANYL [Concomitant]
     Dosage: 12 MUG, 3 TIMES/WK
  8. METOPROLOL [Concomitant]
     Dosage: 50 MG, ONE TIME DOSE
  9. MINALGIN [Concomitant]
     Dosage: 500 MG, TID
  10. MOTILIUM                           /00498201/ [Concomitant]
     Dosage: 10 MG, ONE TIME DOSE
  11. NEO MERCAZOLE [Concomitant]
     Dosage: 5 MG, UNK
  12. PANTOPRAZOL [Concomitant]
     Dosage: 40 MG, ONE TIME DOSE
  13. PHARMATON                          /00124801/ [Concomitant]
     Dosage: UNK UNK, ONE TIME DOSE
  14. TRIATEC                            /00116401/ [Concomitant]
  15. TRITTICO [Concomitant]
     Dosage: 100 MG, UNK
  16. SPIRICORT [Concomitant]
     Dosage: 10 MG, UNK
  17. TORASEM [Concomitant]
     Dosage: 5 MG, QD

REACTIONS (2)
  - Pleural effusion [Not Recovered/Not Resolved]
  - Hyperthyroidism [Not Recovered/Not Resolved]
